FAERS Safety Report 9971472 (Version 1)
Quarter: 2014Q1

REPORT INFORMATION
  Report Type: Spontaneous
  Country: US (occurrence: None)
  Receive Date: 20140305
  Receipt Date: 20140305
  Transmission Date: 20141002
  Serious: No
  Sender: FDA-Public Use
  Company Number: None

PATIENT
  Age: 42 Year
  Sex: Female
  Weight: 72.58 kg

DRUGS (1)
  1. H.P. ACTHAR [Suspect]
     Indication: MULTIPLE SCLEROSIS RELAPSE
     Dosage: 80 ML  ONCE DAILY GIVEN INTO/UNDER THE SKIN
     Route: 058
     Dates: start: 20140222, end: 20140226

REACTIONS (4)
  - Insomnia [None]
  - Local swelling [None]
  - Abdominal distension [None]
  - Dyspnoea [None]
